FAERS Safety Report 5301173-9 (Version None)
Quarter: 2007Q2

REPORT INFORMATION
  Report Type: 
  Country: None (occurrence: None)
  Receive Date: 20070418
  Receipt Date: 20070410
  Transmission Date: 20071010
  Serious: Yes (Death, Other)
  Sender: FDA-Public Use
  Company Number: US-PFIZER INC-2007028805

PATIENT

DRUGS (3)
  1. BEXTRA [Suspect]
     Dosage: TEXT:UNKNOWN
  2. CELEBREX [Suspect]
     Dosage: TEXT:UNKNOWN
  3. VIOXX [Suspect]
     Dosage: TEXT:UNKNOWN
     Dates: start: 20040227, end: 20040920

REACTIONS (2)
  - CEREBROVASCULAR ACCIDENT [None]
  - MYOCARDIAL INFARCTION [None]
